FAERS Safety Report 14586848 (Version 1)
Quarter: 2018Q1

REPORT INFORMATION
  Report Type: Spontaneous
  Country: US (occurrence: US)
  Receive Date: 20180228
  Receipt Date: 20180228
  Transmission Date: 20180509
  Serious: Yes (Disabling, Other)
  Sender: FDA-Public Use
  Company Number: None

PATIENT
  Age: 60 Year
  Sex: Female
  Weight: 99 kg

DRUGS (14)
  1. VITAMIN D [Concomitant]
     Active Substance: CHOLECALCIFEROL
  2. WALKER [Concomitant]
  3. ARNICA MONTANA. [Concomitant]
     Active Substance: HOMEOPATHICS
  4. VINEGAR [Concomitant]
     Active Substance: ACETIC ACID
  5. IBUPROPHEN [Concomitant]
     Active Substance: IBUPROFEN
  6. ASPIRIN. [Concomitant]
     Active Substance: ASPIRIN
  7. MULTIVITAMIN [Concomitant]
     Active Substance: VITAMINS
  8. TUMERIC [Concomitant]
     Active Substance: HERBALS\TURMERIC
  9. GADOLINIUM [Suspect]
     Active Substance: GADOLINIUM
     Indication: NUCLEAR MAGNETIC RESONANCE IMAGING
     Route: 042
     Dates: start: 20170705, end: 20170705
  10. GADOLINIUM [Suspect]
     Active Substance: GADOLINIUM
     Indication: SCAN WITH CONTRAST
     Route: 042
     Dates: start: 20170705, end: 20170705
  11. BACLOFEN. [Concomitant]
     Active Substance: BACLOFEN
  12. GINGER. [Concomitant]
     Active Substance: GINGER
  13. CRUTCHES [Concomitant]
  14. VIT B-12 [Concomitant]

REACTIONS (11)
  - Bone pain [None]
  - Fatigue [None]
  - Cognitive disorder [None]
  - Headache [None]
  - Dyskinesia [None]
  - Pollakiuria [None]
  - Muscular weakness [None]
  - Multiple sclerosis [None]
  - Infusion site pain [None]
  - Arthralgia [None]
  - Balance disorder [None]

NARRATIVE: CASE EVENT DATE: 20170705
